FAERS Safety Report 25662714 (Version 1)
Quarter: 2025Q3

REPORT INFORMATION
  Report Type: Report from Study
  Country: US (occurrence: US)
  Receive Date: 20250811
  Receipt Date: 20250811
  Transmission Date: 20251021
  Serious: Yes (Other)
  Sender: ABBVIE
  Company Number: US-ABBVIE-6405207

PATIENT
  Age: 46 Year
  Sex: Male

DRUGS (1)
  1. RINVOQ [Suspect]
     Active Substance: UPADACITINIB
     Indication: Crohn^s disease
     Route: 048
     Dates: start: 20250610

REACTIONS (7)
  - Ostomy bag placement [Unknown]
  - Paraesthesia [Unknown]
  - Wrong technique in product usage process [Unknown]
  - Blood pressure increased [Recovering/Resolving]
  - Swelling face [Unknown]
  - Peripheral swelling [Unknown]
  - Product residue present [Unknown]

NARRATIVE: CASE EVENT DATE: 20250101
